FAERS Safety Report 20724617 (Version 2)
Quarter: 2022Q2

REPORT INFORMATION
  Report Type: Report from Study
  Country: US (occurrence: None)
  Receive Date: 20220419
  Receipt Date: 20220502
  Transmission Date: 20220721
  Serious: Yes (Hospitalization, Other)
  Sender: FDA-Public Use
  Company Number: US-ROCHE-2998819

PATIENT
  Age: 66 Year
  Sex: Male
  Weight: 93 kg

DRUGS (4)
  1. ATEZOLIZUMAB [Suspect]
     Active Substance: ATEZOLIZUMAB
     Indication: Chondrosarcoma
     Dosage: LAST ADMINISTERED DATE WAS 21/SEP/2021.?SUBSEQUENT DOSE: 03/SEP/2021, 26/MAY/2021
     Route: 041
     Dates: start: 20210416
  2. LOVENOX [Concomitant]
     Active Substance: ENOXAPARIN SODIUM
     Route: 058
  3. INBRX 109 [Concomitant]
  4. DEXTROSE [Concomitant]
     Active Substance: DEXTROSE

REACTIONS (4)
  - Pulmonary embolism [Recovered/Resolved]
  - Small intestinal obstruction [Not Recovered/Not Resolved]
  - Embolism [Unknown]
  - Skin disorder [Unknown]

NARRATIVE: CASE EVENT DATE: 20211011
